FAERS Safety Report 10862271 (Version 1)
Quarter: 2015Q1

REPORT INFORMATION
  Report Type: Spontaneous
  Country: US (occurrence: US)
  Receive Date: 20150224
  Receipt Date: 20150224
  Transmission Date: 20150721
  Serious: Yes (Other)
  Sender: FDA-Public Use
  Company Number: US-PFIZER INC-2015068054

PATIENT
  Age: 69 Year
  Sex: Male
  Weight: 84 kg

DRUGS (2)
  1. TIKOSYN [Suspect]
     Active Substance: DOFETILIDE
     Dosage: 500 ?G, 2X/DAY
     Dates: start: 201409, end: 2014
  2. METOPROLOL [Concomitant]
     Active Substance: METOPROLOL
     Dosage: 50 MG, 2X/DAY (50MG IN MORNING AND 50MG IN EVENING)

REACTIONS (1)
  - Electrocardiogram QT prolonged [Recovered/Resolved]

NARRATIVE: CASE EVENT DATE: 2014
